FAERS Safety Report 7364308-2 (Version None)
Quarter: 2011Q1

REPORT INFORMATION
  Report Type: 
  Country: None (occurrence: None)
  Receive Date: 20110321
  Receipt Date: 20110311
  Transmission Date: 20110831
  Serious: Yes (Other)
  Sender: FDA-Public Use
  Company Number: B0706845A

PATIENT
  Age: 72 Year
  Sex: Male

DRUGS (3)
  1. LITHIUM [Suspect]
     Indication: DEPRESSIVE SYMPTOM
     Route: 065
  2. TRAZODONE [Suspect]
     Indication: DEPRESSIVE SYMPTOM
     Route: 065
  3. BUPROPION [Suspect]
     Indication: DEPRESSIVE SYMPTOM
     Route: 065

REACTIONS (5)
  - MENTAL IMPAIRMENT [None]
  - DRUG INTERACTION [None]
  - METABOLIC ENCEPHALOPATHY [None]
  - HALLUCINATION, VISUAL [None]
  - ATAXIA [None]
